FAERS Safety Report 10812342 (Version 3)
Quarter: 2016Q1

REPORT INFORMATION
  Report Type: Report from Study
  Country: US (occurrence: US)
  Receive Date: 20150218
  Receipt Date: 20160126
  Transmission Date: 20160525
  Serious: Yes (Hospitalization, Other)
  Sender: FDA-Public Use
  Company Number: US-AMGEN-USASL2015014254

PATIENT
  Age: 62 Year
  Sex: Female

DRUGS (2)
  1. ENBREL [Suspect]
     Active Substance: ETANERCEPT
     Indication: PSORIATIC ARTHROPATHY
  2. ENBREL [Suspect]
     Active Substance: ETANERCEPT
     Indication: RHEUMATOID ARTHRITIS
     Dosage: 50 MG, QWK
     Route: 065
     Dates: start: 20141029

REACTIONS (15)
  - Dyspnoea [Unknown]
  - Impaired healing [Unknown]
  - Pain in extremity [Unknown]
  - Pneumonia [Unknown]
  - Mobility decreased [Unknown]
  - Fall [Unknown]
  - Arthralgia [Unknown]
  - Femur fracture [Unknown]
  - Back pain [Unknown]
  - Induration [Unknown]
  - Hip surgery [Unknown]
  - Gait disturbance [Unknown]
  - Intracardiac thrombus [Unknown]
  - Pulmonary embolism [Unknown]
  - Dysstasia [Unknown]

NARRATIVE: CASE EVENT DATE: 2015
